FAERS Safety Report 10134391 (Version 3)
Quarter: 2014Q3

REPORT INFORMATION
  Report Type: Spontaneous
  Country: TR (occurrence: TR)
  Receive Date: 20140428
  Receipt Date: 20140910
  Transmission Date: 20150326
  Serious: Yes (Death, Life-Threatening, Hospitalization, Other)
  Sender: FDA-Public Use
  Company Number: PHHY2014TR051198

PATIENT
  Sex: Male
  Weight: 82 kg

DRUGS (2)
  1. MAJEZIK [Concomitant]
     Active Substance: FLURBIPROFEN
  2. AFINITOR [Suspect]
     Active Substance: EVEROLIMUS
     Indication: METASTATIC RENAL CELL CARCINOMA
     Dosage: 10 MG, DAILY
     Route: 048
     Dates: start: 20140408, end: 20140415

REACTIONS (4)
  - Hepatitis acute [Not Recovered/Not Resolved]
  - Death [Fatal]
  - Hepatic enzyme increased [Not Recovered/Not Resolved]
  - Hepatic failure [Unknown]

NARRATIVE: CASE EVENT DATE: 20140415
